FAERS Safety Report 20472239 (Version 1)
Quarter: 2022Q1

REPORT INFORMATION
  Report Type: Other
  Country: BE (occurrence: None)
  Receive Date: 20220214
  Receipt Date: 20220214
  Transmission Date: 20220423
  Serious: Yes (Hospitalization, Disabling, Other)
  Sender: FDA-Public Use
  Company Number: BE-Square-000049

PATIENT
  Age: 80 Year
  Sex: Female

DRUGS (4)
  1. ACYCLOVIR [Suspect]
     Active Substance: ACYCLOVIR
     Indication: Antiviral prophylaxis
     Dosage: 800 MG 3 TIMES A DAY
  2. PREDNISOLONE ACETATE [Suspect]
     Active Substance: PREDNISOLONE ACETATE
     Indication: Herpes ophthalmic
     Dosage: 10 MG/ML DROPS 5 TIMES A DAY
     Route: 047
  3. ACYCLOVIR [Suspect]
     Active Substance: ACYCLOVIR
     Indication: Antiviral prophylaxis
     Dosage: BELOW 800 MG 2 TIMES A DAY
  4. ACYCLOVIR [Suspect]
     Active Substance: ACYCLOVIR
     Indication: Herpes ophthalmic
     Dosage: BELOW 800 MG 2 TIMES A DAY

REACTIONS (6)
  - Drug resistance [Unknown]
  - Disease recurrence [Recovered/Resolved]
  - Herpes ophthalmic [Recovered/Resolved]
  - Ulcerative keratitis [Recovered/Resolved]
  - Hypopyon [Recovered/Resolved]
  - Blindness [Unknown]
